FAERS Safety Report 8619986-4 (Version None)
Quarter: 2012Q3

REPORT INFORMATION
  Report Type: 
  Country: None (occurrence: None)
  Receive Date: 20120817
  Receipt Date: 20120817
  Transmission Date: 20120928
  Serious: Yes (Other)
  Sender: FDA-Public Use
  Company Number: None

PATIENT
  Sex: Female
  Weight: 108.8633 kg

DRUGS (10)
  1. KLONOPIN [Concomitant]
  2. METFORMIN HCL [Concomitant]
  3. FLUTICASONE PROPIONATE [Concomitant]
  4. ACTOS [Concomitant]
  5. LEVAQUIN [Suspect]
     Indication: VIRAL INFECTION
     Dosage: 500 MG, ONCE PER DAY, PO
     Route: 048
     Dates: start: 20100717, end: 20100723
  6. LEVAQUIN [Suspect]
     Indication: LUNG INFECTION
     Dosage: 500 MG, ONCE PER DAY, PO
     Route: 048
     Dates: start: 20100717, end: 20100723
  7. LAMICTAL [Concomitant]
  8. PREDNISOLONE [Concomitant]
  9. ZOCOR [Concomitant]
  10. MIRAPEX [Concomitant]

REACTIONS (24)
  - NERVE INJURY [None]
  - ANGIOEDEMA [None]
  - MUSCLE ATROPHY [None]
  - DISTURBANCE IN ATTENTION [None]
  - TINNITUS [None]
  - HYPOXIA [None]
  - ROTATOR CUFF SYNDROME [None]
  - DEHYDRATION [None]
  - VISION BLURRED [None]
  - DIPLOPIA [None]
  - TENOSYNOVITIS [None]
  - VENOUS INSUFFICIENCY [None]
  - NAUSEA [None]
  - VOMITING [None]
  - MEMORY IMPAIRMENT [None]
  - ANXIETY [None]
  - PLANTAR FASCIITIS [None]
  - MUSCULOSKELETAL DISORDER [None]
  - NEUROPATHY PERIPHERAL [None]
  - MUSCULAR WEAKNESS [None]
  - COGNITIVE DISORDER [None]
  - INSOMNIA [None]
  - TENDON DISORDER [None]
  - FATIGUE [None]
